FAERS Safety Report 11603842 (Version 2)
Quarter: 2015Q4

REPORT INFORMATION
  Report Type: Spontaneous
  Country: US (occurrence: US)
  Receive Date: 20151007
  Receipt Date: 20151009
  Transmission Date: 20160304
  Serious: Yes (Hospitalization, Other)
  Sender: FDA-Public Use
  Company Number: US-ROCHE-1638894

PATIENT
  Age: 73 Year
  Sex: Female
  Weight: 66.1 kg

DRUGS (54)
  1. ARIMIDEX [Concomitant]
     Active Substance: ANASTROZOLE
     Route: 048
     Dates: end: 20150622
  2. HYDROCORTISONE SODIUM SUCCINATE [Concomitant]
     Active Substance: HYDROCORTISONE SODIUM SUCCINATE
     Route: 042
     Dates: start: 20110629, end: 20110629
  3. HERCEPTIN [Suspect]
     Active Substance: TRASTUZUMAB
     Indication: BREAST CANCER
     Dosage: SOLUTION FOR RECONSTITUTION
     Route: 042
     Dates: start: 20110407, end: 20120621
  4. AFINITOR [Suspect]
     Active Substance: EVEROLIMUS
     Dosage: 5MG/D
     Route: 048
     Dates: start: 20140113
  5. LASIX [Concomitant]
     Active Substance: FUROSEMIDE
     Dosage: EVERY AM
     Route: 048
     Dates: end: 20120222
  6. ACYCLOVIR. [Concomitant]
     Active Substance: ACYCLOVIR
     Route: 048
  7. ABRAXANE [Concomitant]
     Active Substance: PACLITAXEL
     Dosage: DAILY FOR 1 DAY
     Route: 042
     Dates: start: 20111207, end: 20111207
  8. CARBOPLATIN. [Concomitant]
     Active Substance: CARBOPLATIN
     Dosage: OVER 30 FOR 1 DAY
     Route: 042
     Dates: start: 20110720, end: 20111109
  9. LEUCOVORIN CALCIUM. [Concomitant]
     Active Substance: LEUCOVORIN CALCIUM
     Dosage: (AT 20MG/M^2) (OF 300 MG /30ML) FOR 1 DAYS
     Route: 065
     Dates: start: 20141027, end: 20150407
  10. PERTUZUMAB [Concomitant]
     Active Substance: PERTUZUMAB
     Dosage: Q3
     Route: 065
  11. AROMASIN [Suspect]
     Active Substance: EXEMESTANE
     Indication: BREAST CANCER
     Dosage: SHE RECEIVED ON 01/SEP/2015
     Route: 048
  12. IBRANCE [Suspect]
     Active Substance: PALBOCICLIB
     Indication: BREAST CANCER
     Dosage: FOR 21 DAYS
     Route: 048
  13. GABAPENTIN. [Concomitant]
     Active Substance: GABAPENTIN
     Dosage: AT BED TIME AS REQUIRED
     Route: 048
     Dates: end: 20150605
  14. ACETAMINOPHEN/OXYCODONE [Concomitant]
     Active Substance: ACETAMINOPHEN\OXYCODONE HYDROCHLORIDE
     Dosage: 7.5/500 MG
     Route: 048
     Dates: end: 20120618
  15. TEMAZEPAM. [Concomitant]
     Active Substance: TEMAZEPAM
     Dosage: AT BED TIME AS REQUIRED
     Route: 048
     Dates: end: 20150409
  16. CLONIDINE HCL [Concomitant]
     Active Substance: CLONIDINE HYDROCHLORIDE
     Dosage: AS REQUIRED
     Route: 065
  17. DEXAMETHASONE SODIUM PHOSPHATE. [Concomitant]
     Active Substance: DEXAMETHASONE SODIUM PHOSPHATE
     Dosage: FOR 1 DAY
     Route: 042
     Dates: start: 20130827, end: 20131104
  18. DIPHENHYDRAMINE HCL [Concomitant]
     Active Substance: DIPHENHYDRAMINE HYDROCHLORIDE
     Route: 065
     Dates: start: 20110629, end: 20131104
  19. FILGRASTIM [Concomitant]
     Active Substance: FILGRASTIM
     Route: 065
     Dates: start: 20150504, end: 20150504
  20. AFINITOR [Suspect]
     Active Substance: EVEROLIMUS
     Indication: PRODUCT USED FOR UNKNOWN INDICATION
     Route: 048
     Dates: end: 20140915
  21. NAVELBINE [Concomitant]
     Active Substance: VINORELBINE TARTRATE
     Dosage: AT 31.7919 MG/M^2 (50MG/5ML) DAILY FOR 1 DAY
     Route: 042
  22. AMLODIPINE BESILATE [Concomitant]
     Active Substance: AMLODIPINE BESYLATE
     Route: 048
     Dates: end: 20141110
  23. TRIAMTERENE AND HYDROCHLOROTHIAZIDE [Concomitant]
     Active Substance: HYDROCHLOROTHIAZIDE\TRIAMTERENE
     Dosage: (37.5/25 MG) AT BED TIME AS REQUIRED, LAST DOSE 28/MAR2012
     Route: 048
     Dates: end: 20120606
  24. FLUOROURACIL. [Concomitant]
     Active Substance: FLUOROURACIL
     Dosage: (AT 1000MG/M^2) CONTINUOUS OVER 24 HOURS FOR 2 DAYS
     Route: 042
     Dates: start: 20141027, end: 20150408
  25. SALINE FLUSH 0.9% [Concomitant]
     Dosage: ONCE
     Route: 065
     Dates: start: 20110420, end: 20150914
  26. HEPARIN LOCK FLUSH SOLUTION [Concomitant]
     Route: 065
  27. LISINOPRIL. [Concomitant]
     Active Substance: LISINOPRIL
  28. HERCEPTIN [Suspect]
     Active Substance: TRASTUZUMAB
     Dosage: 6.0606 MG/KG DAILY FOR 1 DAY
     Route: 042
     Dates: start: 20120830, end: 20150914
  29. AMOXICILLIN. [Concomitant]
     Active Substance: AMOXICILLIN
     Route: 065
     Dates: start: 20150209
  30. OMEPRAZOLE. [Concomitant]
     Active Substance: OMEPRAZOLE
     Route: 048
     Dates: end: 20150810
  31. KADCYLA [Concomitant]
     Active Substance: ADO-TRASTUZUMAB EMTANSINE
  32. PHENERGAN [Concomitant]
     Active Substance: PROMETHAZINE HYDROCHLORIDE
     Dosage: 1 DAY AS REQUIRED?LAST DOSE:05/JUN/2013
     Route: 042
     Dates: start: 20110413, end: 20130626
  33. DYAZIDE [Concomitant]
     Active Substance: HYDROCHLOROTHIAZIDE\TRIAMTERENE
     Dosage: AT BED TIME AS REQUIRED (37.5/25 MG)
     Route: 048
     Dates: end: 20120605
  34. FEXOFENADINE HCL [Concomitant]
     Active Substance: FEXOFENADINE HYDROCHLORIDE
     Route: 048
     Dates: end: 20150130
  35. RESTORIL [Concomitant]
     Active Substance: TEMAZEPAM
     Dosage: AT BED TIME
     Route: 048
     Dates: end: 20120618
  36. EXEMESTANE. [Concomitant]
     Active Substance: EXEMESTANE
     Route: 048
  37. GEMCITABINE HCL [Concomitant]
     Active Substance: GEMCITABINE HYDROCHLORIDE
     Dosage: (AT 100 MG/M^2) FOR ONE DAY
     Route: 042
     Dates: start: 20130724, end: 20131104
  38. COMPAZINE [Concomitant]
     Active Substance: PROCHLORPERAZINE MALEATE
  39. RANITIDINE HCL [Concomitant]
     Active Substance: RANITIDINE HYDROCHLORIDE
     Dosage: DAILY FOR 1 DAY
     Route: 065
     Dates: start: 20110629, end: 20110629
  40. ACETAMINOPHEN/HYDROCODONE [Concomitant]
     Active Substance: ACETAMINOPHEN\HYDROCODONE
     Dosage: (7.5/500MG),
     Route: 048
     Dates: end: 20120618
  41. LISINOPRIL. [Concomitant]
     Active Substance: LISINOPRIL
     Route: 048
     Dates: end: 20150407
  42. MUCINEX [Concomitant]
     Active Substance: GUAIFENESIN
     Dosage: TABLET SR 12 HR
     Route: 048
     Dates: end: 20150118
  43. METOPROLOL SUCCINATE. [Concomitant]
     Active Substance: METOPROLOL SUCCINATE
     Dosage: (OF 50MG)
     Route: 048
     Dates: start: 20130326
  44. TRAZODONE [Concomitant]
     Active Substance: TRAZODONE HYDROCHLORIDE
     Dosage: AT BED TIME
     Route: 065
  45. SODIUM CHLORIDE. [Concomitant]
     Active Substance: SODIUM CHLORIDE
     Dosage: 500 ML?DAILY FOR 1 ADY
     Route: 042
     Dates: start: 20130401, end: 20140818
  46. TAXOTERE [Concomitant]
     Active Substance: DOCETAXEL
     Dosage: DAILY OVER 1 HOUR FOR 1 DAY
     Route: 042
     Dates: start: 20110413, end: 20110629
  47. CEFUROXIME AXETIL. [Concomitant]
     Active Substance: CEFUROXIME AXETIL
     Route: 048
  48. TRIAMTERENE AND HYDROCHLOROTHIAZIDE [Concomitant]
     Active Substance: HYDROCHLOROTHIAZIDE\TRIAMTERENE
     Dosage: (37.5/25 MG) AT BED TIME AS REQUIRED
     Route: 048
     Dates: end: 20120516
  49. TYKERB [Concomitant]
     Active Substance: LAPATINIB DITOSYLATE
     Dosage: (OF 250 MG)
     Route: 048
     Dates: end: 20131216
  50. VERAMYST [Concomitant]
     Active Substance: FLUTICASONE FUROATE
     Route: 065
     Dates: end: 20120118
  51. ONDANSETRAN [Concomitant]
     Active Substance: ONDANSETRON HYDROCHLORIDE
     Route: 065
     Dates: start: 20150220
  52. MAGNESIUM OXIDE. [Concomitant]
     Active Substance: MAGNESIUM OXIDE
     Route: 048
  53. ATROPINE SULFATE. [Concomitant]
     Active Substance: ATROPINE SULFATE
     Dosage: (0.4 MG/ML)
     Route: 065
  54. GEMZAR [Concomitant]
     Active Substance: GEMCITABINE HYDROCHLORIDE
     Dosage: (AT 889.9 MG/M^2) (FOR 1 DAY)
     Route: 042
     Dates: start: 20120118, end: 20120509

REACTIONS (24)
  - Hyponatraemia [Unknown]
  - Depression [Unknown]
  - Cellulitis [Unknown]
  - Abscess limb [Unknown]
  - Dermatitis [Unknown]
  - Cardiomyopathy [Unknown]
  - Nausea [Unknown]
  - Cardiac disorder [Unknown]
  - Sepsis [Unknown]
  - Anaemia [Unknown]
  - Blood creatinine increased [Unknown]
  - Breast pain [Recovered/Resolved]
  - Vomiting [Unknown]
  - Herpes zoster [Recovered/Resolved]
  - Dysphagia [Unknown]
  - Stomatitis [Unknown]
  - Magnesium metabolism disorder [Unknown]
  - Hypokalaemia [Unknown]
  - Breast inflammation [Unknown]
  - Erythema [Unknown]
  - Dermatophytosis [Unknown]
  - Diarrhoea [Unknown]
  - Ureteric obstruction [Unknown]
  - Oedema [Unknown]

NARRATIVE: CASE EVENT DATE: 20120713
